FAERS Safety Report 19082408 (Version 1)
Quarter: 2021Q2

REPORT INFORMATION
  Report Type: Spontaneous
  Country: ZA (occurrence: ZA)
  Receive Date: 20210401
  Receipt Date: 20210401
  Transmission Date: 20210717
  Serious: Yes (Hospitalization, Other)
  Sender: FDA-Public Use
  Company Number: ZA-CIPLA LTD.-2021ZA02045

PATIENT

DRUGS (5)
  1. EPITEC [Suspect]
     Active Substance: LAMOTRIGINE
     Indication: AFFECTIVE DISORDER
     Dosage: 25 MILLIGRAM, BID
     Route: 048
     Dates: start: 20210204, end: 20210307
  2. FLOMIST [Concomitant]
     Active Substance: FLUTICASONE PROPIONATE
     Indication: SINUSITIS
     Dosage: UNK
     Route: 065
  3. SERDEP [SERTRALINE HYDROCHLORIDE] [Concomitant]
     Indication: AFFECTIVE DISORDER
     Dosage: 100 MILLIGRAM, DAILY
     Route: 048
     Dates: start: 20210127
  4. PHENERGAN [Concomitant]
     Active Substance: PROMETHAZINE HYDROCHLORIDE
     Indication: SLEEP DISORDER
     Dosage: 25 MILLIGRAM, DAILY
     Route: 048
     Dates: start: 20210127
  5. ZOELY [Concomitant]
     Active Substance: ESTRADIOL\NOMEGESTROL ACETATE
     Indication: CONTRACEPTION
     Dosage: UNK
     Route: 048
     Dates: start: 20210127

REACTIONS (3)
  - Off label use [Unknown]
  - Stevens-Johnson syndrome [Recovered/Resolved with Sequelae]
  - Bronchitis [Recovered/Resolved with Sequelae]

NARRATIVE: CASE EVENT DATE: 202102
